FAERS Safety Report 5147678-5 (Version None)
Quarter: 2006Q4

REPORT INFORMATION
  Report Type: 
  Country: None (occurrence: None)
  Receive Date: 20061110
  Receipt Date: 20061031
  Transmission Date: 20070319
  Serious: Yes (Hospitalization)
  Sender: FDA-Public Use
  Company Number: US-KINGPHARMUSA00001-K200601363

PATIENT
  Age: 70 Year
  Sex: Male

DRUGS (7)
  1. ALTACE [Suspect]
     Route: 048
     Dates: start: 20060926
  2. PLAVIX [Suspect]
     Indication: MYOCARDIAL INFARCTION
     Dosage: 75 MG, UNK
     Route: 048
     Dates: start: 20060926
  3. METOPROLOL SUCCINATE [Suspect]
     Route: 048
     Dates: start: 20060926
  4. NORVASC [Suspect]
     Route: 048
     Dates: start: 20060926
  5. NITROGLYCERIN [Suspect]
     Route: 048
     Dates: start: 20060926
  6. LIPITOR [Suspect]
     Route: 048
     Dates: start: 20060926
  7. ASAPHEN [Suspect]
     Dosage: UNK, UNK
     Route: 048
     Dates: start: 20060926

REACTIONS (4)
  - ERYTHEMA [None]
  - HYPERSENSITIVITY [None]
  - LABILE BLOOD PRESSURE [None]
  - OEDEMA PERIPHERAL [None]
